FAERS Safety Report 5034059-8 (Version None)
Quarter: 2006Q2

REPORT INFORMATION
  Report Type: 
  Country: None (occurrence: None)
  Receive Date: 20060621
  Receipt Date: 20060606
  Transmission Date: 20061013
  Serious: Yes (Hospitalization)
  Sender: FDA-Public Use
  Company Number: 14182

PATIENT
  Age: 55 Year
  Sex: Female
  Weight: 111.5849 kg

DRUGS (1)
  1. PACLITAXEL [Suspect]
     Indication: BREAST CANCER
     Dosage: 315 ONCE IV
     Route: 042
     Dates: start: 20060408, end: 20060506

REACTIONS (2)
  - PULMONARY FIBROSIS [None]
  - PULMONARY TOXICITY [None]
